FAERS Safety Report 14349664 (Version 1)
Quarter: 2018Q1

REPORT INFORMATION
  Report Type: Report from Study
  Country: GB (occurrence: GB)
  Receive Date: 20180104
  Receipt Date: 20180104
  Transmission Date: 20180509
  Serious: Yes (Hospitalization)
  Sender: FDA-Public Use
  Company Number: US-ASTRAZENECA-2018SE00450

PATIENT
  Age: 25187 Day
  Sex: Male
  Weight: 82.7 kg

DRUGS (1)
  1. MEDI4736 [Suspect]
     Active Substance: DURVALUMAB
     Indication: OESOPHAGEAL ADENOCARCINOMA
     Dosage: 840MG
     Route: 042
     Dates: start: 20171101

REACTIONS (1)
  - Paraesthesia [Recovered/Resolved with Sequelae]

NARRATIVE: CASE EVENT DATE: 20171114
